FAERS Safety Report 7974627-4 (Version None)
Quarter: 2011Q4

REPORT INFORMATION
  Report Type: 
  Country: None (occurrence: None)
  Receive Date: 20111213
  Receipt Date: 20111206
  Transmission Date: 20120403
  Serious: Yes (Death, Life-Threatening, Hospitalization, Other)
  Sender: FDA-Public Use
  Company Number: US-ACTELION-A-US2011-56844

PATIENT

DRUGS (19)
  1. CEFTIN [Concomitant]
  2. LASIX [Concomitant]
  3. COUMADIN [Concomitant]
  4. CURASOL [Concomitant]
  5. POTASSIUM CHLORIDE [Concomitant]
  6. EPOPROSTENOL SODIUM [Suspect]
     Indication: PULMONARY ARTERIAL HYPERTENSION
     Dosage: 49 NG/KG, PER MIN
     Route: 042
     Dates: start: 20100901
  7. CYANOCOBALAMIN [Concomitant]
  8. IRON [Concomitant]
  9. AMBRISENTAN [Concomitant]
  10. ARAVA [Concomitant]
  11. ZOLOFT [Concomitant]
  12. ADCIRCA [Concomitant]
  13. DIGOXIN [Concomitant]
  14. SPIRONOLACTONE [Concomitant]
     Dosage: UNK
     Dates: start: 20100901
  15. IODOSORB [Concomitant]
  16. LYRICA [Concomitant]
  17. NEXIUM [Concomitant]
  18. PREDNISONE TAB [Concomitant]
  19. PLAQUENIL [Concomitant]

REACTIONS (4)
  - SPLENOMEGALY [None]
  - LUNG TRANSPLANT [None]
  - DEATH [None]
  - PANCYTOPENIA [None]
